FAERS Safety Report 19605676 (Version 3)
Quarter: 2021Q3

REPORT INFORMATION
  Report Type: Spontaneous
  Country: JP (occurrence: JP)
  Receive Date: 20210723
  Receipt Date: 20210823
  Transmission Date: 20211014
  Serious: Yes (Death, Other)
  Sender: FDA-Public Use
  Company Number: JP-FERRINGPH-2021FE04743

PATIENT
  Sex: Male

DRUGS (1)
  1. GONAX [Suspect]
     Active Substance: DEGARELIX
     Indication: PROSTATE CANCER
     Dosage: 80 MG, EVERY 4 WEEKS
     Route: 058

REACTIONS (1)
  - Subarachnoid haemorrhage [Fatal]
